FAERS Safety Report 7289369-0 (Version None)
Quarter: 2011Q1

REPORT INFORMATION
  Report Type: 
  Country: None (occurrence: None)
  Receive Date: 20110211
  Receipt Date: 20110204
  Transmission Date: 20110831
  Serious: Yes (Other)
  Sender: FDA-Public Use
  Company Number: US-CEPHALON-2011000591

PATIENT
  Sex: Female
  Weight: 59 kg

DRUGS (3)
  1. OMEPRAZOLE [Concomitant]
  2. OXYCODONE HCL [Concomitant]
     Dates: start: 20100101
  3. AMRIX [Suspect]
     Indication: BACK PAIN
     Route: 048
     Dates: start: 20110201, end: 20110201

REACTIONS (3)
  - INCOHERENT [None]
  - FEELING DRUNK [None]
  - SOMNOLENCE [None]
